FAERS Safety Report 15902868 (Version 1)
Quarter: 2019Q1

REPORT INFORMATION
  Report Type: Spontaneous
  Country: DE (occurrence: DE)
  Receive Date: 20190202
  Receipt Date: 20190202
  Transmission Date: 20190417
  Serious: Yes (Death, Hospitalization)
  Sender: FDA-Public Use
  Company Number: DE-ACCORD-104325

PATIENT
  Age: 63 Year
  Sex: Male
  Weight: 91 kg

DRUGS (9)
  1. FLUOROURACIL. [Suspect]
     Active Substance: FLUOROURACIL
     Indication: COLORECTAL CANCER
     Route: 042
     Dates: start: 20140224, end: 20140317
  2. IRINOTECAN [Suspect]
     Active Substance: IRINOTECAN
     Indication: COLORECTAL CANCER
     Route: 042
     Dates: start: 20130610, end: 20130722
  3. AMLODIPINE [Concomitant]
     Active Substance: AMLODIPINE BESYLATE
     Indication: HYPERTENSION
     Route: 048
     Dates: start: 20050107, end: 20140402
  4. OXALIPLATIN. [Suspect]
     Active Substance: OXALIPLATIN
     Indication: COLORECTAL CANCER
     Route: 042
     Dates: start: 20140224, end: 20140317
  5. FOLINIC ACID [Suspect]
     Active Substance: LEUCOVORIN
     Indication: COLORECTAL CANCER
     Dosage: DAILY DOSE: 1000 MG MILLGRAM(S) EVERY WEEKS
     Route: 042
     Dates: start: 20130610, end: 20131029
  6. ALLOPURINOL. [Concomitant]
     Active Substance: ALLOPURINOL
     Indication: HYPERCHOLESTEROLAEMIA
     Dosage: DAILY DOSE: 300 MG MILLGRAM(S) EVERY DAYS
     Route: 048
     Dates: start: 20050107, end: 20140402
  7. AVASTIN [Suspect]
     Active Substance: BEVACIZUMAB
     Indication: COLORECTAL CANCER
     Dosage: DAILY DOSE: 450 MG MILLGRAM(S) EVERY 15 DAYS
     Route: 042
     Dates: start: 20140224, end: 20140310
  8. LEUCOVORIN. [Suspect]
     Active Substance: LEUCOVORIN
     Indication: COLORECTAL CANCER
     Dosage: DAILY DOSE: 1000 MG MILLGRAM(S) EVERY WEEKS
     Route: 065
     Dates: start: 20130610, end: 20131029
  9. NORVASC [Concomitant]
     Active Substance: AMLODIPINE BESYLATE
     Indication: HYPERTENSION
     Dosage: DAILY DOSE: 5 MG MILLGRAM(S) EVERY DAYS
     Route: 048
     Dates: start: 20050107, end: 20140402

REACTIONS (6)
  - Haematemesis [Fatal]
  - Colorectal cancer [Fatal]
  - Oesophagobronchial fistula [Fatal]
  - Pulmonary haemorrhage [Fatal]
  - Atelectasis [Recovered/Resolved]
  - Necrotising colitis [Fatal]

NARRATIVE: CASE EVENT DATE: 20131210
